FAERS Safety Report 10573399 (Version 1)
Quarter: 2014Q4

REPORT INFORMATION
  Report Type: Spontaneous
  Country: US (occurrence: None)
  Receive Date: 20141030
  Receipt Date: 20141030
  Transmission Date: 20150529
  Serious: Yes (Hospitalization)
  Sender: FDA-Public Use
  Company Number: PHEH2014US014698

PATIENT
  Age: 61 Year
  Sex: Female

DRUGS (8)
  1. VIVELLE DOT [Suspect]
     Active Substance: ESTRADIOL
     Route: 062
  2. OMEPRAZOLE (OMEPRAZOLE) [Concomitant]
     Active Substance: OMEPRAZOLE
  3. SIMVASTATIN (SIMVASTATIN) [Concomitant]
     Active Substance: SIMVASTATIN
  4. COPAXONE [Concomitant]
     Active Substance: GLATIRAMER ACETATE
  5. CLONAZEPAM (CLONAZEPAM) [Concomitant]
  6. ZANAFLEX [Concomitant]
     Active Substance: TIZANIDINE HYDROCHLORIDE
  7. ESTRADIOL (ESTRADIOL) (GEL) [Suspect]
     Active Substance: ESTRADIOL
     Route: 062
  8. PROVIGIL/CHORIONIC GONADOTROPHIN (CHORIONIC GONADOTROPHIN) [Concomitant]

REACTIONS (3)
  - Product adhesion issue [None]
  - Hyperhidrosis [None]
  - Drug ineffective [None]
